FAERS Safety Report 22264726 (Version 3)
Quarter: 2023Q2

REPORT INFORMATION
  Report Type: Report from Study
  Country: US (occurrence: US)
  Receive Date: 20230428
  Receipt Date: 20230531
  Transmission Date: 20230721
  Serious: No
  Sender: FDA-Public Use
  Company Number: US-002147023-NVSC2023US096400

PATIENT
  Sex: Male

DRUGS (1)
  1. ENTRESTO [Suspect]
     Active Substance: SACUBITRIL\VALSARTAN
     Indication: Product used for unknown indication
     Dosage: 1 DOSAGE FORM, BID
     Route: 048

REACTIONS (10)
  - Feeling abnormal [Recovering/Resolving]
  - Fluid retention [Recovering/Resolving]
  - Weight decreased [Unknown]
  - Throat clearing [Unknown]
  - Taste disorder [Unknown]
  - Dry mouth [Unknown]
  - Abdominal discomfort [Unknown]
  - Insomnia [Unknown]
  - Hypotension [Unknown]
  - Fatigue [Recovering/Resolving]
